FAERS Safety Report 8304179-0 (Version None)
Quarter: 2012Q2

REPORT INFORMATION
  Report Type: 
  Country: None (occurrence: None)
  Receive Date: 20120423
  Receipt Date: 20120417
  Transmission Date: 20120825
  Serious: Yes (Other)
  Sender: FDA-Public Use
  Company Number: US-PFIZER INC-2012095467

PATIENT
  Sex: Male
  Weight: 104.31 kg

DRUGS (2)
  1. BICILLIN L-A [Suspect]
     Indication: LYME DISEASE
     Dosage: 1.2 MILLION UNITS, THREE TIMES A WEEK
     Route: 030
     Dates: start: 20120101, end: 20120201
  2. OXYMORPHONE [Concomitant]
     Indication: PAIN
     Dosage: UNK

REACTIONS (6)
  - GAIT DISTURBANCE [None]
  - BABESIOSIS [None]
  - BARTONELLOSIS [None]
  - GENERAL PHYSICAL HEALTH DETERIORATION [None]
  - LYME DISEASE [None]
  - CONDITION AGGRAVATED [None]
